FAERS Safety Report 11224169 (Version 1)
Quarter: 2015Q2

REPORT INFORMATION
  Report Type: Report from Study
  Country: FR (occurrence: FR)
  Receive Date: 20150629
  Receipt Date: 20150629
  Transmission Date: 20150821
  Serious: Yes (Other)
  Sender: FDA-Public Use
  Company Number: FR-JNJFOC-20150615618

PATIENT
  Age: 37 Year
  Sex: Male
  Weight: 85 kg

DRUGS (1)
  1. SIMPONI [Suspect]
     Active Substance: GOLIMUMAB
     Indication: ARTHRITIS
     Route: 058
     Dates: start: 20150309, end: 20150309

REACTIONS (3)
  - Rash [Recovered/Resolved]
  - Adverse drug reaction [Unknown]
  - Asthma [Recovered/Resolved]

NARRATIVE: CASE EVENT DATE: 2015
